FAERS Safety Report 5623712-0 (Version None)
Quarter: 2008Q1

REPORT INFORMATION
  Report Type: 
  Country: None (occurrence: None)
  Receive Date: 20080207
  Receipt Date: 20080124
  Transmission Date: 20080703
  Serious: Yes (Hospitalization, Other)
  Sender: FDA-Public Use
  Company Number: WAES 0709USC00070

PATIENT
  Age: 50 Year
  Sex: Male
  Weight: 69.8539 kg

DRUGS (11)
  1. ISENTRESS [Suspect]
     Indication: HIV INFECTION
     Dosage: 400MG/BID/PO
     Route: 048
     Dates: start: 20070709, end: 20071003
  2. SUSTIVA [Suspect]
     Indication: HIV INFECTION
     Dosage: 600 MG/QHS/
     Dates: start: 20070709, end: 20071003
  3. EPIVIR [Suspect]
     Indication: HIV INFECTION
     Dosage: 300 MG/DAILY
     Dates: start: 20070709
  4. VIDEX EC [Suspect]
     Indication: HIV INFECTION
     Dosage: 400 MG/DAILY
     Dates: start: 20070709, end: 20071003
  5. ANDROGEL [Concomitant]
  6. DIFLUCAN [Concomitant]
  7. MEPRON [Concomitant]
  8. OXANDRIN [Concomitant]
  9. PROCRIT [Concomitant]
  10. INSULIN GLARGINE [Concomitant]
  11. IRBESARTAN [Concomitant]

REACTIONS (13)
  - BIOPSY BONE MARROW ABNORMAL [None]
  - BLOOD CREATINE INCREASED [None]
  - BLOOD UREA INCREASED [None]
  - HAEMATOCRIT DECREASED [None]
  - HAEMOGLOBIN DECREASED [None]
  - HYPERSENSITIVITY [None]
  - IMMUNE RECONSTITUTION SYNDROME [None]
  - NEPHRITIS INTERSTITIAL [None]
  - PLATELET COUNT DECREASED [None]
  - PYREXIA [None]
  - RASH [None]
  - RASH PAPULAR [None]
  - WHITE BLOOD CELL COUNT DECREASED [None]
